FAERS Safety Report 4372093-1 (Version None)
Quarter: 2004Q2

REPORT INFORMATION
  Report Type: 
  Country: None (occurrence: None)
  Receive Date: 20040601
  Receipt Date: 20040515
  Transmission Date: 20050107
  Serious: Yes (Death, Other)
  Sender: FDA-Public Use
  Company Number: USA-2004-0015284

PATIENT
  Age: 34 Year
  Sex: Female

DRUGS (10)
  1. OXYCONTIN [Suspect]
     Dosage: MG, SEE TEXT
  2. EFFEXOR XR [Concomitant]
  3. ELAVIL [Concomitant]
  4. ESTROTEST (TESTOSTERONE PHENYLPROPIONAET, ESTRADIOL UNDECYLATE, BENZYL [Concomitant]
  5. RELAFEN [Concomitant]
  6. ULTRAM [Concomitant]
  7. BUSPAR [Concomitant]
  8. ALBUTEROL [Concomitant]
  9. NORFLEX [Concomitant]
  10. AGGRENOX [Concomitant]

REACTIONS (8)
  - COMA [None]
  - DETOXIFICATION [None]
  - DRUG ABUSER [None]
  - DRUG SCREEN POSITIVE [None]
  - HEMIPLEGIA [None]
  - INTENTIONAL MISUSE [None]
  - SELF-MEDICATION [None]
  - THROMBOEMBOLIC STROKE [None]
